FAERS Safety Report 6810707-4 (Version None)
Quarter: 2010Q2

REPORT INFORMATION
  Report Type: 
  Country: None (occurrence: None)
  Receive Date: 20100630
  Receipt Date: 20070904
  Transmission Date: 20101027
  Serious: No
  Sender: FDA-Public Use
  Company Number: US-PFIZER INC-2007074581

PATIENT
  Sex: Female
  Weight: 43.1 kg

DRUGS (9)
  1. NICOTINE [Suspect]
     Indication: SMOKING CESSATION THERAPY
     Dates: start: 20070801
  2. CHANTIX [Suspect]
     Indication: SMOKING CESSATION THERAPY
     Dates: start: 20070828
  3. SPIRIVA [Concomitant]
     Route: 055
  4. ADVAIR DISKUS 100/50 [Concomitant]
     Route: 055
  5. DITROPAN [Concomitant]
  6. VYTORIN [Concomitant]
  7. CLOTRIMAZOLE [Concomitant]
  8. ACIPHEX [Concomitant]
  9. FOSAMAX [Concomitant]

REACTIONS (3)
  - ABDOMINAL DISCOMFORT [None]
  - INSOMNIA [None]
  - MALAISE [None]
